FAERS Safety Report 5150041-4 (Version None)
Quarter: 2006Q4

REPORT INFORMATION
  Report Type: 
  Country: None (occurrence: None)
  Receive Date: 20061113
  Receipt Date: 20061108
  Transmission Date: 20070319
  Serious: Yes (Other)
  Sender: FDA-Public Use
  Company Number: US-MERCK-0611USA02934

PATIENT
  Age: 46 Year
  Sex: Female

DRUGS (9)
  1. FOSAMAX [Suspect]
     Indication: OSTEOPENIA
     Route: 048
     Dates: start: 20061001, end: 20061001
  2. CLARITIN [Concomitant]
     Route: 065
  3. PROTONIX [Concomitant]
     Route: 065
  4. DOXYCYCLINE [Concomitant]
     Route: 065
  5. COLCHICINE [Concomitant]
     Route: 065
  6. ESTRADIOL [Concomitant]
     Route: 065
  7. SINGULAIR [Concomitant]
     Route: 065
  8. LUNESTA [Concomitant]
     Route: 065
  9. VITAMIN D (UNSPECIFIED) [Concomitant]
     Route: 065

REACTIONS (3)
  - LOSS OF CONSCIOUSNESS [None]
  - PHARYNGEAL OEDEMA [None]
  - SHOCK [None]
